FAERS Safety Report 11783541 (Version 1)
Quarter: 2015Q4

REPORT INFORMATION
  Report Type: Spontaneous
  Country: US (occurrence: US)
  Receive Date: 20151127
  Receipt Date: 20151127
  Transmission Date: 20160305
  Serious: Yes (Other)
  Sender: FDA-Public Use
  Company Number: US-ASTRAZENECA-2015SF18508

PATIENT
  Age: 23532 Day
  Sex: Female
  Weight: 71.7 kg

DRUGS (15)
  1. ATENOLOL. [Suspect]
     Active Substance: ATENOLOL
     Indication: ESSENTIAL HYPERTENSION
     Route: 048
     Dates: start: 20150731
  2. LYRICA [Suspect]
     Active Substance: PREGABALIN
     Indication: NEUROPATHY PERIPHERAL
     Route: 048
     Dates: start: 20151103
  3. VISTARIL [Suspect]
     Active Substance: HYDROXYZINE PAMOATE
     Route: 065
  4. VENLAFAXINE ER [Concomitant]
     Active Substance: VENLAFAXINE HYDROCHLORIDE
     Dates: start: 20150519
  5. ROSUVASTATIN [Suspect]
     Active Substance: ROSUVASTATIN
     Route: 048
  6. ESTRADIOL. [Concomitant]
     Active Substance: ESTRADIOL
     Route: 048
     Dates: start: 20150801
  7. FISH OIL [Concomitant]
     Active Substance: FISH OIL
  8. PROAIR HFA [Concomitant]
     Active Substance: ALBUTEROL SULFATE
     Dosage: 90 MEG/ACTUATION, 2 PUFFS EVERY 4 HOURS
     Route: 055
     Dates: start: 20140313
  9. SILVER SULFADIAZINE. [Concomitant]
     Active Substance: SILVER SULFADIAZINE
     Dosage: APPLY A THICK LAYER TO ENTIRE BURN AREA 2 TIMES PER DAY
     Route: 061
     Dates: start: 20151006
  10. TRAZODONE [Concomitant]
     Active Substance: TRAZODONE HYDROCHLORIDE
     Route: 048
     Dates: start: 20150408
  11. ATENOLOL. [Suspect]
     Active Substance: ATENOLOL
     Indication: ESSENTIAL HYPERTENSION
     Route: 048
     Dates: start: 20151103
  12. HYDROCODONE BITARTRATE AND ACETAMINOPHEN [Concomitant]
     Active Substance: ACETAMINOPHEN\HYDROCODONE BITARTRATE
     Indication: PAIN
     Dosage: 7.5 MG/325MG; TABLET BY MOUTH EVERY 6 HOURS AS NEEDED
     Route: 048
     Dates: start: 20151026
  13. LYRICA [Suspect]
     Active Substance: PREGABALIN
     Indication: NEUROPATHY PERIPHERAL
     Route: 048
     Dates: start: 20151103
  14. ALPRAZOLAM. [Concomitant]
     Active Substance: ALPRAZOLAM
     Indication: NERVOUSNESS
     Dosage: 1/2 TO 1 TABLET UP TO 3 TIMES DAILY AS NEEDED
  15. FAMOTIDINE. [Concomitant]
     Active Substance: FAMOTIDINE
     Route: 048
     Dates: start: 20150408

REACTIONS (4)
  - Peripheral swelling [Unknown]
  - Drug hypersensitivity [Unknown]
  - Myalgia [Unknown]
  - Burns third degree [Unknown]

NARRATIVE: CASE EVENT DATE: 20150408
